FAERS Safety Report 4939590-9 (Version None)
Quarter: 2006Q1

REPORT INFORMATION
  Report Type: 
  Country: None (occurrence: None)
  Receive Date: 20060310
  Receipt Date: 20060202
  Transmission Date: 20060701
  Serious: Yes (Other)
  Sender: FDA-Public Use
  Company Number: US-AVENTIS-200611289US

PATIENT
  Age: 37 Year
  Sex: Male
  Weight: 66.7 kg

DRUGS (6)
  1. KETEK [Suspect]
     Indication: SINUSITIS
     Route: 048
     Dates: start: 20051221, end: 20051226
  2. FLOVENT [Concomitant]
  3. ALLEGRA [Concomitant]
  4. PROVENTIL [Concomitant]
     Dosage: DOSE: PRN
  5. HYZAAR [Concomitant]
     Dosage: DOSE: 50/12.5
  6. VIOXX [Concomitant]

REACTIONS (9)
  - ALANINE AMINOTRANSFERASE INCREASED [None]
  - ASPARTATE AMINOTRANSFERASE INCREASED [None]
  - BLOOD BILIRUBIN INCREASED [None]
  - CYTOMEGALOVIRUS HEPATITIS [None]
  - FATIGUE [None]
  - HEPATOTOXICITY [None]
  - NAUSEA [None]
  - PAIN [None]
  - PYREXIA [None]
